FAERS Safety Report 13907178 (Version 4)
Quarter: 2017Q4

REPORT INFORMATION
  Report Type: Spontaneous
  Country: JP (occurrence: JP)
  Receive Date: 20170825
  Receipt Date: 20171227
  Transmission Date: 20180320
  Serious: Yes (Hospitalization, Other)
  Sender: FDA-Public Use
  Company Number: JP-GILEAD-2017-0289719AA

PATIENT
  Age: 69 Year
  Sex: Female
  Weight: 38.5 kg

DRUGS (9)
  1. REBETOL [Concomitant]
     Active Substance: RIBAVIRIN
     Indication: CHRONIC HEPATITIS C
     Dosage: 600 MG, UNK
     Route: 048
     Dates: start: 20170618, end: 20170810
  2. ZETIA [Concomitant]
     Active Substance: EZETIMIBE
     Dosage: 10 MG, UNK
     Route: 048
  3. MAGMITT [Concomitant]
     Active Substance: MAGNESIUM OXIDE
     Dosage: 3.6 G, UNK
     Route: 048
  4. NEUROTROPIN                        /06251301/ [Concomitant]
     Active Substance: ORYCTOLAGUS CUNICULUS SKIN
     Dosage: 16 IU, UNK
     Route: 048
  5. MOSAPRIDE [Concomitant]
     Active Substance: MOSAPRIDE
     Dosage: 15 MG, UNK
     Route: 048
  6. CALONAL [Concomitant]
     Active Substance: ACETAMINOPHEN
     Route: 065
  7. TOWATHIEM [Concomitant]
     Active Substance: ACETAMINOPHEN\CAFFEINE\PROMETHAZINE\SALICYLAMIDE
     Dosage: 3 G, UNK
     Route: 048
  8. SOVALDI [Suspect]
     Active Substance: SOFOSBUVIR
     Indication: CHRONIC HEPATITIS C
     Dosage: 400 MG, QD
     Route: 048
     Dates: start: 20170618, end: 20170810
  9. EDIROL [Concomitant]
     Active Substance: ELDECALCITOL
     Dosage: 0.75 UG, UNK
     Route: 048

REACTIONS (3)
  - Cognitive disorder [Unknown]
  - Overdose [Recovered/Resolved]
  - Cerebral haemorrhage [Recovered/Resolved]
